FAERS Safety Report 17757370 (Version 1)
Quarter: 2020Q2

REPORT INFORMATION
  Report Type: Spontaneous
  Country: US (occurrence: US)
  Receive Date: 20200507
  Receipt Date: 20200507
  Transmission Date: 20200714
  Serious: No
  Sender: FDA-Public Use
  Company Number: US-AMNEAL PHARMACEUTICALS-2019-AMRX-02236

PATIENT
  Age: 74 Year
  Sex: Male
  Weight: 69.84 kg

DRUGS (5)
  1. DICLOFENAC SODIUM. [Suspect]
     Active Substance: DICLOFENAC SODIUM
     Indication: PAIN IN EXTREMITY
     Dosage: 4 GRAM, BID (APPLY 4G ON THE FOOT TWICE A DAY)
     Route: 061
     Dates: start: 20191006, end: 20191007
  2. HYDROCHLOROTHIAZIDE. [Concomitant]
     Active Substance: HYDROCHLOROTHIAZIDE
     Indication: HYPERTENSION
     Dosage: 12.5 MILLIGRAM, DAILY
     Route: 065
  3. BETAXOLOL. [Concomitant]
     Active Substance: BETAXOLOL
     Indication: HYPERTENSION
     Dosage: 5 MILLIGRAM, 1 /DAY
     Route: 048
  4. ATORVASTATIN [Concomitant]
     Active Substance: ATORVASTATIN
     Indication: BLOOD CHOLESTEROL ABNORMAL
     Dosage: 10 MILLIGRAM, 1 /DAY
     Route: 065
  5. NAPROXEN. [Concomitant]
     Active Substance: NAPROXEN
     Indication: PAIN
     Dosage: UNK, 2 /DAY
     Route: 065

REACTIONS (3)
  - Drug ineffective [Unknown]
  - Gout [Unknown]
  - Cardiac discomfort [Recovering/Resolving]

NARRATIVE: CASE EVENT DATE: 20191006
